FAERS Safety Report 12385119 (Version 1)
Quarter: 2016Q2

REPORT INFORMATION
  Report Type: Spontaneous
  Country: US (occurrence: US)
  Receive Date: 20160519
  Receipt Date: 20160519
  Transmission Date: 20160815
  Serious: Yes (Hospitalization)
  Sender: FDA-Public Use
  Company Number: US-MDT-ADR-2016-00044

PATIENT
  Age: 62 Year
  Sex: Female

DRUGS (2)
  1. MORPHINE [Suspect]
     Active Substance: MORPHINE
     Dosage: 0.13278MG/DAY
  2. BACLOFEN. [Suspect]
     Active Substance: BACLOFEN
     Dosage: 265.6MCG/DAY
     Route: 037

REACTIONS (3)
  - Pain in extremity [Unknown]
  - Pain [Unknown]
  - Back pain [Unknown]

NARRATIVE: CASE EVENT DATE: 201512
